FAERS Safety Report 5028014-1 (Version None)
Quarter: 2006Q2

REPORT INFORMATION
  Report Type: 
  Country: None (occurrence: None)
  Receive Date: 20060612
  Receipt Date: 20060602
  Transmission Date: 20061013
  Serious: Yes (Hospitalization)
  Sender: FDA-Public Use
  Company Number: 2006JP000313

PATIENT
  Age: 13 Year
  Sex: Male
  Weight: 39 kg

DRUGS (3)
  1. PROTOPIC [Suspect]
     Indication: DERMATITIS ATOPIC
     Dosage: 0.03 %, UNK, TOPICAL
     Route: 061
     Dates: start: 20040527, end: 20040802
  2. RINDERON-VG (GENTAMICIN SULFATE) [Concomitant]
  3. HIRUDOID (MUCOPOLYSACCHARIDE POLYSULFURIC ACID ESTER) [Concomitant]

REACTIONS (4)
  - BACTERIAL INFECTION [None]
  - ECZEMA [None]
  - IMPETIGO [None]
  - SKIN EROSION [None]
